FAERS Safety Report 5222877-2 (Version None)
Quarter: 2007Q1

REPORT INFORMATION
  Report Type: 
  Country: None (occurrence: None)
  Receive Date: 20070124
  Receipt Date: 20070109
  Transmission Date: 20070707
  Serious: Yes (Hospitalization)
  Sender: FDA-Public Use
  Company Number: S07-DEN-00250-01

PATIENT
  Age: 64 Year

DRUGS (5)
  1. CITALOPRAM HYDROBROMIDE [Suspect]
     Indication: DEPRESSION
     Dosage: 30 MG QD PO
     Route: 048
     Dates: start: 20060915, end: 20061101
  2. CITALOPRAM HYDROBROMIDE [Suspect]
     Indication: DEPRESSION
     Dosage: 20 MG QD PO
     Route: 048
     Dates: start: 20060424, end: 20060914
  3. SIMVASTATIN [Suspect]
     Indication: BLOOD CHOLESTEROL INCREASED
     Dosage: 80 MG QD PO
     Route: 048
     Dates: start: 20011004, end: 20061101
  4. HJERTEMAGNYL (ALBYL-ENTEROSOLUBILE) [Concomitant]
  5. TRANDOLAPRIL [Concomitant]

REACTIONS (1)
  - RHABDOMYOLYSIS [None]
